FAERS Safety Report 8300758-5 (Version None)
Quarter: 2012Q2

REPORT INFORMATION
  Report Type: 
  Country: None (occurrence: None)
  Receive Date: 20120420
  Receipt Date: 20120416
  Transmission Date: 20120825
  Serious: Yes (Hospitalization)
  Sender: FDA-Public Use
  Company Number: PHHY2012CA031092

PATIENT
  Sex: Female

DRUGS (8)
  1. ZOLEDRONOC ACID [Suspect]
     Dosage: UNK UKN, UNK
     Route: 042
     Dates: start: 20100519
  2. SULFASALAZINE [Concomitant]
     Dosage: 500 MG, BID
  3. LIPITOR [Concomitant]
     Dosage: 20 MG, UNK
  4. MAVIK [Concomitant]
     Dosage: 4 MG, UNK
  5. ZOLEDRONOC ACID [Suspect]
     Indication: OSTEOPOROSIS
     Dosage: UNK UKN, UNK
     Route: 042
     Dates: start: 20090520
  6. ZOLEDRONOC ACID [Suspect]
     Dosage: UNK UKN, UNK
     Route: 042
     Dates: start: 20110511
  7. ASAPHEN [Concomitant]
  8. NORVASC [Concomitant]
     Dosage: 5 MG, UNK

REACTIONS (1)
  - CEREBROVASCULAR ACCIDENT [None]
